FAERS Safety Report 17324568 (Version 1)
Quarter: 2020Q1

REPORT INFORMATION
  Report Type: Spontaneous
  Country: KR (occurrence: KR)
  Receive Date: 20200127
  Receipt Date: 20200127
  Transmission Date: 20200409
  Serious: Yes (Hospitalization, Other)
  Sender: FDA-Public Use
  Company Number: KR-SA-2020SA016753

PATIENT
  Age: 13 Year
  Sex: Male
  Weight: 76.5 kg

DRUGS (3)
  1. METFORMIN HYDROCHLORIDE. [Suspect]
     Active Substance: METFORMIN HYDROCHLORIDE
     Indication: TYPE 2 DIABETES MELLITUS
     Dosage: 500 MG, BID
     Route: 048
  2. INSULIN GLARGINE [Suspect]
     Active Substance: INSULIN GLARGINE
     Dosage: 30 IU, INCREASED UP TO 30 U (0.4 U/KG)
  3. INSULIN GLARGINE [Suspect]
     Active Substance: INSULIN GLARGINE
     Dosage: UNK

REACTIONS (8)
  - Diabetic ketoacidosis [Recovering/Resolving]
  - Ketosis-prone diabetes mellitus [Recovering/Resolving]
  - Nocturia [Recovering/Resolving]
  - Diabetes mellitus inadequate control [Recovering/Resolving]
  - Nausea [Recovering/Resolving]
  - Lethargy [Recovering/Resolving]
  - Weight decreased [Recovering/Resolving]
  - Acanthosis nigricans [Recovering/Resolving]
